FAERS Safety Report 9795256 (Version 1)
Quarter: 2014Q1

REPORT INFORMATION
  Report Type: Report from Study
  Country: FR (occurrence: FR)
  Receive Date: 20140103
  Receipt Date: 20140103
  Transmission Date: 20141002
  Serious: Yes (Other)
  Sender: FDA-Public Use
  Company Number: FR-ROCHE-1326661

PATIENT
  Sex: 0

DRUGS (3)
  1. ENFUVIRTIDE [Suspect]
     Indication: HIV INFECTION
     Route: 065
  2. TIPRANAVIR [Suspect]
     Indication: HIV INFECTION
     Route: 065
  3. RITONAVIR [Suspect]
     Indication: HIV INFECTION
     Route: 065

REACTIONS (1)
  - Alanine aminotransferase increased [Unknown]
